FAERS Safety Report 11921878 (Version 1)
Quarter: 2016Q1

REPORT INFORMATION
  Report Type: Spontaneous
  Country: US (occurrence: US)
  Receive Date: 20160115
  Receipt Date: 20160115
  Transmission Date: 20160526
  Serious: No
  Sender: FDA-Public Use
  Company Number: US-APOTEX-2015AP008835

PATIENT
  Age: 48 Year
  Sex: Female

DRUGS (5)
  1. LITHIUM CARBONATE. [Interacting]
     Active Substance: LITHIUM CARBONATE
     Dosage: 900 MG, BID
     Route: 048
  2. LITHIUM CARBONATE. [Suspect]
     Active Substance: LITHIUM CARBONATE
     Indication: BIPOLAR DISORDER
     Dosage: 600 MG, BID
     Route: 048
  3. QUETIAPINE [Concomitant]
     Active Substance: QUETIAPINE
     Indication: MANIA
     Dosage: 400 MG, BID
     Route: 065
  4. LACTULOSE SOLUTION USP [Interacting]
     Active Substance: LACTULOSE
     Indication: CONSTIPATION
     Dosage: 30ML FOR 2 DAYS (5 DOSES)
     Route: 065
  5. BENAZEPRIL [Concomitant]
     Active Substance: BENAZEPRIL HYDROCHLORIDE
     Indication: HYPERTENSION
     Dosage: 20 MG, DAILY
     Route: 065

REACTIONS (2)
  - Drug interaction [Recovered/Resolved]
  - Toxicity to various agents [Recovered/Resolved]
